FAERS Safety Report 4977698-2 (Version None)
Quarter: 2006Q2

REPORT INFORMATION
  Report Type: 
  Country: None (occurrence: None)
  Receive Date: 20060420
  Receipt Date: 20051228
  Transmission Date: 20061013
  Serious: No
  Sender: FDA-Public Use
  Company Number: US-GLAXOSMITHKLINE-A0587088A

PATIENT
  Age: 46 Year
  Sex: Female

DRUGS (4)
  1. ESKALITH [Suspect]
     Dosage: 450MG THREE TIMES PER DAY
     Route: 048
  2. VIVELLE [Concomitant]
  3. XANAX [Concomitant]
  4. MAXALT-MLT [Concomitant]

REACTIONS (2)
  - SLEEP DISORDER [None]
  - WEIGHT DECREASED [None]
